FAERS Safety Report 8831091 (Version 1)
Quarter: 2012Q4

REPORT INFORMATION
  Report Type: 
  Country: MX (occurrence: MX)
  Receive Date: 20121009
  Receipt Date: 20121009
  Transmission Date: 20130627
  Serious: Yes (Hospitalization, Other)
  Sender: FDA-Public Use
  Company Number: PHHY2012MX088359

PATIENT
  Age: 9 Year
  Sex: Male

DRUGS (2)
  1. TRILEPTAL [Suspect]
     Indication: EPILEPSY
     Dosage: 1 DF BID, (6 g/100 ml)
     Dates: start: 201112, end: 20120701
  2. VALPROATE MAGNESIUM [Concomitant]
     Indication: CONVULSION
     Dosage: 2.5 ml, TID
     Dates: start: 20120711

REACTIONS (1)
  - Brain neoplasm [Unknown]
